FAERS Safety Report 5373145-X (Version None)
Quarter: 2007Q2

REPORT INFORMATION
  Report Type: 
  Country: None (occurrence: None)
  Receive Date: 20070627
  Receipt Date: 20070621
  Transmission Date: 20071010
  Serious: Yes (Other)
  Sender: FDA-Public Use
  Company Number: CA-PFIZER INC-2007051158

PATIENT
  Age: 37 Year
  Sex: Male

DRUGS (16)
  1. REVATIO [Suspect]
  2. FUROSEMIDE [Suspect]
  3. ASAPHEN [Suspect]
  4. NEORAL [Concomitant]
  5. PREDNISONE TAB [Concomitant]
  6. AVELOX [Concomitant]
  7. BACTRIM [Concomitant]
  8. ATACAND [Concomitant]
  9. IRON [Concomitant]
  10. PANTOPRAZOLE SODIUM [Concomitant]
  11. CALCIUM CHLORIDE [Concomitant]
  12. VITAMIN D [Concomitant]
  13. FOSAMAX [Concomitant]
  14. PRAVACHOL [Concomitant]
  15. GLUCONORM [Concomitant]
  16. VALCYTE [Concomitant]

REACTIONS (1)
  - HYPOACUSIS [None]
